FAERS Safety Report 11198386 (Version 1)
Quarter: 2015Q2

REPORT INFORMATION
  Report Type: Spontaneous
  Country: US (occurrence: None)
  Receive Date: 20150615
  Receipt Date: 20150615
  Transmission Date: 20150821
  Serious: Yes (Disabling)
  Sender: FDA-Public Use
  Company Number: None

PATIENT
  Age: 72 Year
  Sex: Male
  Weight: 74.84 kg

DRUGS (7)
  1. ASPRIN [Concomitant]
     Active Substance: ASPIRIN
  2. METOPROLOL TARTRATE. [Concomitant]
     Active Substance: METOPROLOL TARTRATE
  3. LOSARTAN [Concomitant]
     Active Substance: LOSARTAN
  4. WARFARIN [Concomitant]
     Active Substance: WARFARIN
  5. VITAMIN D [Concomitant]
     Active Substance: CHOLECALCIFEROL
  6. ZETIA [Suspect]
     Active Substance: EZETIMIBE
     Indication: BLOOD CHOLESTEROL
     Route: 048
     Dates: start: 20150107, end: 20150311
  7. LEVOTHYROXIN [Concomitant]
     Active Substance: LEVOTHYROXINE

REACTIONS (4)
  - Back disorder [None]
  - Arthralgia [None]
  - Gait disturbance [None]
  - Insomnia [None]
